FAERS Safety Report 4598811-5 (Version None)
Quarter: 2005Q1

REPORT INFORMATION
  Report Type: 
  Country: None (occurrence: None)
  Receive Date: 20050302
  Receipt Date: 20050222
  Transmission Date: 20050727
  Serious: Yes (Hospitalization)
  Sender: FDA-Public Use
  Company Number: US014352

PATIENT
  Age: 25 Year
  Sex: Female

DRUGS (2)
  1. PROVIGIL [Suspect]
     Indication: MULTIPLE SCLEROSIS
     Dosage: 200 MG PRN ORAL
     Route: 048
     Dates: start: 20040801, end: 20041108
  2. INTERFERON [Suspect]

REACTIONS (16)
  - ANTINUCLEAR ANTIBODY POSITIVE [None]
  - ARTHRALGIA [None]
  - DEPRESSED LEVEL OF CONSCIOUSNESS [None]
  - DRUG INTERACTION [None]
  - HEADACHE [None]
  - HYPERSENSITIVITY [None]
  - PAIN IN EXTREMITY [None]
  - PYREXIA [None]
  - RASH [None]
  - STRESS [None]
  - SWELLING [None]
  - TOXIC SHOCK SYNDROME [None]
  - URTICARIA [None]
  - VISION BLURRED [None]
  - VISUAL DISTURBANCE [None]
  - WHITE BLOOD CELL COUNT INCREASED [None]
